FAERS Safety Report 5136286-8 (Version None)
Quarter: 2006Q4

REPORT INFORMATION
  Report Type: 
  Country: None (occurrence: None)
  Receive Date: 20061027
  Receipt Date: 20061019
  Transmission Date: 20070319
  Serious: Yes (Life-Threatening)
  Sender: FDA-Public Use
  Company Number: CA-GLAXOSMITHKLINE-A0624310A

PATIENT
  Age: 83 Year
  Sex: Male
  Weight: 65.9 kg

DRUGS (7)
  1. SEREVENT [Suspect]
     Indication: ASTHMA
     Dosage: 50MCG TWICE PER DAY
     Dates: start: 20061004, end: 20061023
  2. UNSPECIFIED MEDICATIONS [Concomitant]
  3. SYNTHROID [Concomitant]
     Dosage: 50MCG PER DAY
     Route: 048
     Dates: start: 20060621
  4. ATENOLOL [Concomitant]
     Dosage: 25MG TWICE PER DAY
     Route: 048
     Dates: start: 20060921
  5. LACTULOSE [Concomitant]
     Dates: start: 20060614
  6. PAROXETINE HCL [Concomitant]
     Dosage: 10MG PER DAY
     Route: 048
     Dates: start: 20050121
  7. ADALAT [Concomitant]
     Dates: start: 20060524

REACTIONS (3)
  - DRUG INEFFECTIVE [None]
  - DYSPNOEA [None]
  - PHARMACEUTICAL PRODUCT COMPLAINT [None]
